FAERS Safety Report 13036191 (Version 1)
Quarter: 2016Q4

REPORT INFORMATION
  Report Type: Spontaneous
  Country: CA (occurrence: CA)
  Receive Date: 20161216
  Receipt Date: 20161216
  Transmission Date: 20170207
  Serious: Yes (Other)
  Sender: FDA-Public Use
  Company Number: PHHY2016CA172567

PATIENT
  Age: 13 Year

DRUGS (5)
  1. 4-AMINOSALICYLIC ACID [Suspect]
     Active Substance: AMINOSALICYLIC ACID
     Indication: EXTRAPULMONARY TUBERCULOSIS
     Route: 065
  2. CYCLOSERINE. [Suspect]
     Active Substance: CYCLOSERINE
     Indication: EXTRAPULMONARY TUBERCULOSIS
     Route: 065
  3. AMIKACIN [Concomitant]
     Active Substance: AMIKACIN
     Indication: EXTRAPULMONARY TUBERCULOSIS
     Route: 065
  4. CLOFAZIMINE [Suspect]
     Active Substance: CLOFAZIMINE
     Indication: EXTRAPULMONARY TUBERCULOSIS
     Route: 065
  5. MOXIFLOXACIN. [Suspect]
     Active Substance: MOXIFLOXACIN
     Indication: EXTRAPULMONARY TUBERCULOSIS
     Route: 065

REACTIONS (4)
  - Hypothyroidism [Unknown]
  - Anaemia [Unknown]
  - Iron deficiency [Unknown]
  - Drug tolerance [Unknown]
